FAERS Safety Report 6573351-2 (Version None)
Quarter: 2010Q1

REPORT INFORMATION
  Report Type: 
  Country: None (occurrence: None)
  Receive Date: 20100208
  Receipt Date: 20100129
  Transmission Date: 20100710
  Serious: Yes (Hospitalization, Other)
  Sender: FDA-Public Use
  Company Number: CA-ASTRAZENECA-2010SE04251

PATIENT
  Age: 90 Year
  Sex: Female

DRUGS (3)
  1. ARIMIDEX [Suspect]
     Route: 048
  2. ARIMIDEX [Suspect]
     Route: 048
     Dates: start: 20100128
  3. THYROID MEDICATION [Concomitant]
     Dosage: INCREASED FROM 0.5 TO 0.75

REACTIONS (11)
  - DYSPEPSIA [None]
  - DYSPHAGIA [None]
  - ERUCTATION [None]
  - FALL [None]
  - FATIGUE [None]
  - HIATUS HERNIA [None]
  - HYPOTHYROIDISM [None]
  - LUMBAR VERTEBRAL FRACTURE [None]
  - NODULE [None]
  - PAIN [None]
  - SKIN LACERATION [None]
